FAERS Safety Report 10156054 (Version 1)
Quarter: 2014Q2

REPORT INFORMATION
  Report Type: Report from Study
  Country: US (occurrence: US)
  Receive Date: 20140506
  Receipt Date: 20140506
  Transmission Date: 20141212
  Serious: Yes (Other)
  Sender: FDA-Public Use
  Company Number: PHEH2014US008906

PATIENT
  Sex: Male

DRUGS (1)
  1. TASIGNA [Suspect]
     Indication: CHRONIC MYELOID LEUKAEMIA (IN REMISSION)
     Dosage: 400 MG, BID
     Route: 048
     Dates: start: 20120823

REACTIONS (3)
  - Infection [Recovered/Resolved]
  - Chills [Recovered/Resolved]
  - Dehydration [Recovered/Resolved]
